FAERS Safety Report 22541712 (Version 1)
Quarter: 2023Q2

REPORT INFORMATION
  Report Type: Spontaneous
  Country: US (occurrence: US)
  Receive Date: 20230609
  Receipt Date: 20230609
  Transmission Date: 20230722
  Serious: No
  Sender: FDA-Public Use
  Company Number: US-PFIZER INC-PV202300101663

PATIENT
  Age: 4 Decade
  Sex: Male

DRUGS (2)
  1. CIBINQO [Suspect]
     Active Substance: ABROCITINIB
     Indication: Dermatitis atopic
     Dosage: 1 DF
  2. CIBINQO [Suspect]
     Active Substance: ABROCITINIB
     Dosage: 1 DF, DAILY

REACTIONS (2)
  - Hypoaesthesia [Recovered/Resolved]
  - Visual impairment [Recovered/Resolved]
